FAERS Safety Report 9203794 (Version 2)
Quarter: 2013Q2

REPORT INFORMATION
  Report Type: Spontaneous
  Country: US (occurrence: US)
  Receive Date: 20130402
  Receipt Date: 20130419
  Transmission Date: 20140414
  Serious: Yes (Other)
  Sender: FDA-Public Use
  Company Number: US-PFIZER INC-2013103230

PATIENT
  Age: 43 Year
  Sex: Female
  Weight: 134 kg

DRUGS (12)
  1. LYRICA [Suspect]
     Indication: CONVULSION
     Dosage: 225MG IN THE MORNING AND 150 MG MID-DAY
  2. LYRICA [Interacting]
     Indication: SCIATICA
     Dosage: 600 MG, UNK
  3. LYRICA [Interacting]
     Indication: FIBROMYALGIA
     Dosage: 150 MG, UNK
  4. LYRICA [Interacting]
     Indication: NEURALGIA
  5. ADVAIR DISKUS [Suspect]
     Indication: ASTHMA
     Dosage: 250/50 UG, 2X/DAY
  6. ZYRTEC [Concomitant]
     Indication: HYPERSENSITIVITY
     Dosage: UNK, AS NEEDED
  7. VICODIN [Concomitant]
     Indication: BREAKTHROUGH PAIN
     Dosage: 7.5/300 MG, DAILY
  8. HYDROCHLOROTHIAZIDE [Concomitant]
     Indication: BLOOD PRESSURE ABNORMAL
     Dosage: 50 MG, 1X/DAY IN THE MORNING
  9. CLONIDINE [Concomitant]
     Indication: BLOOD PRESSURE ABNORMAL
     Dosage: 0.2 MG, 1X/DAY IN THE MORNING
  10. OMEPRAZOLE [Concomitant]
     Indication: GASTROOESOPHAGEAL REFLUX DISEASE
     Dosage: 20 MG, 2X/DAY
  11. MORPHINE SULFATE [Concomitant]
     Indication: BREAKTHROUGH PAIN
     Dosage: 15 MG, 5X/DAY
  12. DIAZEPAM [Concomitant]
     Indication: MUSCLE SPASMS
     Dosage: 5 MG, 3X/DAY

REACTIONS (12)
  - Drug ineffective [Unknown]
  - Asthma [Unknown]
  - Fall [Unknown]
  - Ligament sprain [Unknown]
  - Dizziness [Unknown]
  - Gastric disorder [Unknown]
  - Drug interaction [Unknown]
  - Psychomotor hyperactivity [Unknown]
  - Feeling abnormal [Unknown]
  - Gait disturbance [Unknown]
  - Increased appetite [Unknown]
  - Dyspnoea [Unknown]
